FAERS Safety Report 10064449 (Version 2)
Quarter: 2014Q2

REPORT INFORMATION
  Report Type: Spontaneous
  Country: US (occurrence: US)
  Receive Date: 20140408
  Receipt Date: 20140415
  Transmission Date: 20141212
  Serious: Yes (Other)
  Sender: FDA-Public Use
  Company Number: US-ASTRAZENECA-2014SE22710

PATIENT
  Age: 72 Year
  Sex: Female
  Weight: 65.3 kg

DRUGS (18)
  1. PRILOSEC [Suspect]
     Indication: GASTRIC DISORDER
     Route: 048
     Dates: start: 201004, end: 201006
  2. PRILOSEC [Suspect]
     Indication: GASTROOESOPHAGEAL REFLUX DISEASE
     Route: 048
     Dates: start: 201004, end: 201006
  3. PRILOSEC [Suspect]
     Indication: GASTRIC DISORDER
     Route: 048
  4. PRILOSEC [Suspect]
     Indication: GASTROOESOPHAGEAL REFLUX DISEASE
     Route: 048
  5. PRILOSEC [Suspect]
     Indication: GASTRIC DISORDER
     Route: 048
     Dates: start: 2011
  6. PRILOSEC [Suspect]
     Indication: GASTROOESOPHAGEAL REFLUX DISEASE
     Route: 048
     Dates: start: 2011
  7. PRILOSEC [Suspect]
     Indication: GASTRIC DISORDER
     Route: 048
     Dates: start: 201207
  8. PRILOSEC [Suspect]
     Indication: GASTROOESOPHAGEAL REFLUX DISEASE
     Route: 048
     Dates: start: 201207
  9. PRILOSEC [Suspect]
     Indication: GASTRIC DISORDER
     Route: 048
  10. PRILOSEC [Suspect]
     Indication: GASTROOESOPHAGEAL REFLUX DISEASE
     Route: 048
  11. LISINOPRIL [Suspect]
     Indication: BLOOD PRESSURE
     Route: 048
  12. METOPROLOL [Suspect]
     Indication: BLOOD PRESSURE
     Dosage: 20-25 MG DAILY
     Route: 048
     Dates: start: 1994
  13. POTASSIUM [Suspect]
     Route: 065
  14. NARCOTIC PAINKILLERS [Concomitant]
  15. OTC PAINKILLERS [Concomitant]
  16. STATIN [Concomitant]
     Indication: BLOOD CHOLESTEROL
     Route: 048
     Dates: start: 2013
  17. REQUIP [Concomitant]
     Indication: RESTLESS LEGS SYNDROME
     Route: 048
     Dates: start: 2004
  18. ALPRAZOLAM [Concomitant]
     Route: 048

REACTIONS (8)
  - Tibia fracture [Unknown]
  - Fall [Recovered/Resolved]
  - Femur fracture [Unknown]
  - Blood potassium decreased [Unknown]
  - Blood cholesterol abnormal [Unknown]
  - Gastritis erosive [Recovered/Resolved]
  - Off label use [Recovered/Resolved]
  - Intentional product misuse [Unknown]
